FAERS Safety Report 5110054-5 (Version None)
Quarter: 2006Q3

REPORT INFORMATION
  Report Type: 
  Country: None (occurrence: None)
  Receive Date: 20060921
  Receipt Date: 20060906
  Transmission Date: 20061208
  Serious: Yes (Other)
  Sender: FDA-Public Use
  Company Number: JP-BAYER-200611024BYL

PATIENT

DRUGS (5)
  1. ADALAT [Suspect]
     Indication: HYPERTENSION
     Dosage: UNIT DOSE: 20 MG
     Route: 048
  2. MICARDIS [Concomitant]
     Route: 048
  3. OLMESARTAN MEDOXOMIL [Concomitant]
     Route: 048
  4. KAMAG [Concomitant]
     Route: 048
  5. GLIMICRON [Concomitant]
     Route: 048

REACTIONS (1)
  - BUNDLE BRANCH BLOCK LEFT [None]
